APPROVED DRUG PRODUCT: LORATADINE
Active Ingredient: LORATADINE
Strength: 10MG
Dosage Form/Route: TABLET;ORAL
Application: A078447 | Product #001
Applicant: PHARMOBEDIENT CONSULTING LLC
Approved: Aug 12, 2011 | RLD: No | RS: No | Type: DISCN